FAERS Safety Report 17886606 (Version 1)
Quarter: 2020Q2

REPORT INFORMATION
  Report Type: Spontaneous
  Country: US (occurrence: US)
  Receive Date: 20200611
  Receipt Date: 20200611
  Transmission Date: 20200714
  Serious: No
  Sender: FDA-Public Use
  Company Number: US-GALDERMA-US19042683

PATIENT
  Age: 71 Year
  Sex: Female

DRUGS (5)
  1. ORACEA [Suspect]
     Active Substance: DOXYCYCLINE
     Indication: SKIN MASS
     Dosage: 40MG
     Route: 048
     Dates: start: 20190624, end: 20190624
  2. CALCIUM [Concomitant]
     Active Substance: CALCIUM
     Indication: PRODUCT USED FOR UNKNOWN INDICATION
     Route: 065
  3. ORACEA [Suspect]
     Active Substance: DOXYCYCLINE
     Indication: LIP SWELLING
  4. VITAMINS [Concomitant]
     Active Substance: VITAMINS
     Indication: PRODUCT USED FOR UNKNOWN INDICATION
     Route: 065
  5. BIOTIN [Concomitant]
     Active Substance: BIOTIN
     Indication: PRODUCT USED FOR UNKNOWN INDICATION
     Route: 065

REACTIONS (2)
  - Drug effective for unapproved indication [Recovered/Resolved]
  - Intentional product use issue [Recovered/Resolved]

NARRATIVE: CASE EVENT DATE: 20190624
